FAERS Safety Report 17928656 (Version 1)
Quarter: 2020Q2

REPORT INFORMATION
  Report Type: Spontaneous
  Country: US (occurrence: US)
  Receive Date: 20200622
  Receipt Date: 20200622
  Transmission Date: 20200714
  Serious: No
  Sender: FDA-Public Use
  Company Number: None

PATIENT
  Age: 17 Year
  Sex: Male
  Weight: 64.7 kg

DRUGS (2)
  1. PENTAMIDINE [Suspect]
     Active Substance: PENTAMIDINE
     Indication: ACUTE LYMPHOCYTIC LEUKAEMIA
     Route: 042
  2. PENTAMIDINE [Suspect]
     Active Substance: PENTAMIDINE
     Indication: PROPHYLAXIS
     Route: 042

REACTIONS (1)
  - Hypersensitivity [None]

NARRATIVE: CASE EVENT DATE: 20200418
